FAERS Safety Report 8956772 (Version 1)
Quarter: 2012Q4

REPORT INFORMATION
  Report Type: 
  Country: US (occurrence: US)
  Receive Date: 20121211
  Receipt Date: 20121211
  Transmission Date: 20130627
  Serious: Yes (Disabling, Other)
  Sender: FDA-Public Use
  Company Number: US-PAR PHARMACEUTICAL, INC-2010AL002266

PATIENT
  Sex: Male
  Weight: 81.63 kg

DRUGS (6)
  1. METOCLOPRAMIDE [Suspect]
     Indication: GASTROOESOPHAGEAL REFLUX DISEASE
     Dosage: 10 mg, Unknown
     Route: 048
     Dates: start: 19990528, end: 20020409
  2. RANITIDINE [Concomitant]
     Indication: PRODUCT USED FOR UNKNOWN INDICATION
     Dosage: UNK, Unknown
     Route: 065
  3. AMARYL [Concomitant]
     Indication: PRODUCT USED FOR UNKNOWN INDICATION
     Dosage: UNK, Unknown
     Route: 065
  4. GLUCOPHAGE [Concomitant]
     Indication: PRODUCT USED FOR UNKNOWN INDICATION
     Dosage: UNK, Unknown
     Route: 065
  5. HEMORRHOIDAL HC                    /00028604/ [Concomitant]
     Indication: PRODUCT USED FOR UNKNOWN INDICATION
     Dosage: UNK, Unknown
     Route: 065
  6. ZOCOR [Concomitant]
     Indication: PRODUCT USED FOR UNKNOWN INDICATION
     Dosage: UNK, Unknown
     Route: 065

REACTIONS (19)
  - Intentional drug misuse [Unknown]
  - Movement disorder [Unknown]
  - Nervous system disorder [Unknown]
  - Extrapyramidal disorder [Unknown]
  - Pain [Unknown]
  - Mental disorder [Unknown]
  - Anxiety [Unknown]
  - Injury [Unknown]
  - Low income [Unknown]
  - Depression [Unknown]
  - Tardive dyskinesia [Unknown]
  - Activities of daily living impaired [Unknown]
  - Deformity [Unknown]
  - Economic problem [Unknown]
  - Disability [Unknown]
  - Dyskinesia [Unknown]
  - Protrusion tongue [Recovered/Resolved]
  - Bruxism [Unknown]
  - Tongue biting [Unknown]
